FAERS Safety Report 16776292 (Version 1)
Quarter: 2019Q3

REPORT INFORMATION
  Report Type: Spontaneous
  Country: ES (occurrence: ES)
  Receive Date: 20190905
  Receipt Date: 20190905
  Transmission Date: 20191005
  Serious: Yes (Hospitalization)
  Sender: FDA-Public Use
  Company Number: ES-MYLANLABS-2019M1083018

PATIENT
  Age: 75 Year
  Sex: Female

DRUGS (5)
  1. LORMETAZEPAM [Concomitant]
     Active Substance: LORMETAZEPAM
     Dosage: 1 MG, UNKNOWN
  2. BISOPROLOL [Concomitant]
     Active Substance: BISOPROLOL
     Dosage: 5 MG, DAILY
  3. OMEPRAZOLE. [Suspect]
     Active Substance: OMEPRAZOLE
     Indication: PRODUCT USED FOR UNKNOWN INDICATION
     Dosage: 20 MG, DAILY
     Route: 065
  4. AVAMYS [Concomitant]
     Active Substance: FLUTICASONE FUROATE
     Dosage: UNK
     Route: 045
  5. ENALAPRIL [Concomitant]
     Active Substance: ENALAPRIL
     Dosage: 10 MG, UNKNOWN

REACTIONS (1)
  - Ductal adenocarcinoma of pancreas [Not Recovered/Not Resolved]
